FAERS Safety Report 10455405 (Version 1)
Quarter: 2014Q3

REPORT INFORMATION
  Report Type: Spontaneous
  Country: FR (occurrence: FR)
  Receive Date: 20140916
  Receipt Date: 20140916
  Transmission Date: 20150326
  Serious: Yes (Other)
  Sender: FDA-Public Use
  Company Number: FR-ROCHE-1461565

PATIENT
  Age: 65 Year
  Sex: Male

DRUGS (8)
  1. LIPANTHYL [Concomitant]
     Active Substance: FENOFIBRATE
  2. OXYCONTIN [Concomitant]
     Active Substance: OXYCODONE HYDROCHLORIDE
  3. MOLSIDOMINE [Concomitant]
     Active Substance: MOLSIDOMINE
  4. ROCEPHINE [Suspect]
     Active Substance: CEFTRIAXONE SODIUM
     Indication: CHRONIC OBSTRUCTIVE PULMONARY DISEASE
     Route: 030
     Dates: start: 20140729, end: 20140730
  5. KARDEGIC [Concomitant]
     Active Substance: ASPIRIN LYSINE
  6. LIDOCAINE. [Concomitant]
     Active Substance: LIDOCAINE
  7. LERCAN [Concomitant]
     Active Substance: LERCANIDIPINE
  8. LYRICA [Concomitant]
     Active Substance: PREGABALIN

REACTIONS (2)
  - Tubulointerstitial nephritis [Recovered/Resolved]
  - Rash morbilliform [Recovered/Resolved]

NARRATIVE: CASE EVENT DATE: 20140730
